FAERS Safety Report 9626980 (Version 2)
Quarter: 2014Q1

REPORT INFORMATION
  Report Type: Spontaneous
  Country: GR (occurrence: GR)
  Receive Date: 20131016
  Receipt Date: 20140217
  Transmission Date: 20141002
  Serious: Yes (Other)
  Sender: FDA-Public Use
  Company Number: PHHY2013GR112975

PATIENT
  Age: 47 Year
  Sex: Female

DRUGS (6)
  1. VALPROIC ACID [Suspect]
     Indication: BIPOLAR II DISORDER
     Dosage: 1.5 G, QD
  2. VENLAFAXINE [Interacting]
     Indication: BIPOLAR II DISORDER
     Dosage: 300 MG, BID
  3. VENLAFAXINE [Interacting]
     Dosage: 75 MG, QD
  4. QUETIAPINE [Interacting]
     Indication: BIPOLAR II DISORDER
     Dosage: 150 MG, QD
  5. QUETIAPINE [Interacting]
     Dosage: 100 MG, QD
  6. TOPIRAMATE [Suspect]
     Indication: BIPOLAR II DISORDER
     Dosage: 100 MG, QD

REACTIONS (4)
  - Restless legs syndrome [Recovered/Resolved]
  - Dyskinesia [Recovered/Resolved]
  - Paraesthesia [Recovered/Resolved]
  - Drug interaction [Unknown]
